FAERS Safety Report 4562383-1 (Version None)
Quarter: 2005Q1

REPORT INFORMATION
  Report Type: 
  Country: None (occurrence: None)
  Receive Date: 20050121
  Receipt Date: 20050106
  Transmission Date: 20050727
  Serious: Yes (Other)
  Sender: FDA-Public Use
  Company Number: WAES 0411GBR00233

PATIENT
  Age: 72 Year
  Sex: Male

DRUGS (6)
  1. VIOXX [Suspect]
     Indication: NEOPLASM PROPHYLAXIS
     Dosage: 25 MG/DAILY, PO
     Route: 048
     Dates: start: 20040206, end: 20041002
  2. AMLODIPINE BESYLATE [Concomitant]
  3. ASPIRIN [Concomitant]
  4. BENDROFLUMETHIAZIDE [Concomitant]
  5. CHONDOITIN SULFATE SODIUM (+) GLUCOSAMI [Concomitant]
  6. COD LIVER OIL [Concomitant]

REACTIONS (2)
  - MYOCARDIAL INFARCTION [None]
  - SILENT MYOCARDIAL INFARCTION [None]
